FAERS Safety Report 14570999 (Version 2)
Quarter: 2018Q1

REPORT INFORMATION
  Report Type: Spontaneous
  Country: US (occurrence: US)
  Receive Date: 20180226
  Receipt Date: 20180327
  Transmission Date: 20180509
  Serious: Yes (Death, Hospitalization, Other)
  Sender: FDA-Public Use
  Company Number: US-ACCORD-063679

PATIENT
  Age: 46 Year
  Sex: Female
  Weight: 49.2 kg

DRUGS (8)
  1. CARBOPLATIN ACCORD [Suspect]
     Active Substance: CARBOPLATIN
     Indication: COLON CANCER
     Route: 042
     Dates: start: 20171116, end: 20171116
  2. PEMBROLIZUMAB. [Suspect]
     Active Substance: PEMBROLIZUMAB
     Indication: COLON CANCER
     Route: 042
     Dates: start: 20171116, end: 20171116
  3. DECADRON [Concomitant]
     Active Substance: DEXAMETHASONE
     Dosage: 10 MG ONCE FOLLOWED BY IV DECADRON 4 MG QID.
     Route: 042
     Dates: start: 20171226
  4. ZOMETA [Concomitant]
     Active Substance: ZOLEDRONIC ACID
     Dates: start: 2015
  5. FLUOROURACIL. [Suspect]
     Active Substance: FLUOROURACIL
     Indication: COLON CANCER
     Route: 042
     Dates: start: 20171116, end: 20171116
  6. EPACADOSTAT [Suspect]
     Active Substance: EPACADOSTAT
     Indication: COLON CANCER
     Dosage: FREQUENCY: BID
     Route: 048
     Dates: start: 20171116, end: 20171120
  7. ZOFRAN [Concomitant]
     Active Substance: ONDANSETRON HYDROCHLORIDE
     Dates: start: 2015, end: 20171120
  8. PHENERGAN [Concomitant]
     Active Substance: PROMETHAZINE HYDROCHLORIDE
     Dates: start: 2015, end: 20171120

REACTIONS (6)
  - Dehydration [Not Recovered/Not Resolved]
  - Nausea [Not Recovered/Not Resolved]
  - Disease progression [Fatal]
  - Spinal cord compression [Not Recovered/Not Resolved]
  - Vomiting [Not Recovered/Not Resolved]
  - Off label use [Unknown]

NARRATIVE: CASE EVENT DATE: 20171120
